FAERS Safety Report 11143654 (Version 1)
Quarter: 2015Q2

REPORT INFORMATION
  Report Type: Spontaneous
  Country: US (occurrence: US)
  Receive Date: 20150526
  Receipt Date: 20150526
  Transmission Date: 20150821
  Serious: No
  Sender: FDA-Public Use
  Company Number: US-DRREDDYS-USA/USA/15/0046106

PATIENT
  Age: 55 Year
  Sex: Female
  Weight: 56.2 kg

DRUGS (1)
  1. MONTELUKAST [Suspect]
     Active Substance: MONTELUKAST SODIUM
     Indication: HYPERSENSITIVITY
     Route: 048
     Dates: start: 20150119, end: 20150122

REACTIONS (7)
  - Heart rate irregular [Recovered/Resolved]
  - Cardiac discomfort [Recovered/Resolved]
  - Cardiac flutter [Unknown]
  - Nasal congestion [Unknown]
  - Drug ineffective [Unknown]
  - Product quality issue [Unknown]
  - Wrong technique in drug usage process [Unknown]

NARRATIVE: CASE EVENT DATE: 20150121
